FAERS Safety Report 23481681 (Version 2)
Quarter: 2024Q1

REPORT INFORMATION
  Report Type: Spontaneous
  Country: US (occurrence: US)
  Receive Date: 20240205
  Receipt Date: 20240208
  Transmission Date: 20240410
  Serious: Yes (Other)
  Sender: FDA-Public Use
  Company Number: US-JNJFOC-20240178349

PATIENT
  Sex: Female

DRUGS (1)
  1. HUMAN THROMBIN [Suspect]
     Active Substance: HUMAN THROMBIN
     Indication: Hysterectomy
     Route: 065

REACTIONS (2)
  - Post procedural haemorrhage [Unknown]
  - Off label use [Unknown]
